FAERS Safety Report 23508140 (Version 1)
Quarter: 2024Q1

REPORT INFORMATION
  Report Type: Report from Study
  Country: IT (occurrence: IT)
  Receive Date: 20240209
  Receipt Date: 20240209
  Transmission Date: 20240410
  Serious: Yes (Other)
  Sender: FDA-Public Use
  Company Number: None

PATIENT
  Age: 78 Year
  Sex: Female

DRUGS (18)
  1. EZETIMIBE [Interacting]
     Active Substance: EZETIMIBE
     Indication: Product used for unknown indication
     Dosage: 10 MG AT 20:00 HOUR
  2. ALLOPURINOL [Interacting]
     Active Substance: ALLOPURINOL
     Indication: Product used for unknown indication
     Dosage: 300 MG AT 14:00 HOUR
  3. PAROXETINE [Interacting]
     Active Substance: PAROXETINE
     Indication: Product used for unknown indication
     Dosage: 1MG/ML
  4. OMEPRAZOLE SODIUM [Interacting]
     Active Substance: OMEPRAZOLE SODIUM
     Indication: Product used for unknown indication
     Dosage: 20 MG AT 8:00 HOUR
  5. MEDROL [Interacting]
     Active Substance: METHYLPREDNISOLONE
     Indication: Product used for unknown indication
     Dosage: 4 MG AT 8:00 HOUR ON MONDAYS AND THURSDAYS
  6. ATORVASTATIN [Interacting]
     Active Substance: ATORVASTATIN
     Indication: Product used for unknown indication
     Dosage: 80MG AT 20:00 HOUR
  7. COUMADIN [Suspect]
     Active Substance: WARFARIN SODIUM
     Indication: Product used for unknown indication
     Dosage: 5 MG
     Dates: start: 20231224, end: 20231226
  8. LEVOTHYROXINE [Concomitant]
     Active Substance: LEVOTHYROXINE\LEVOTHYROXINE SODIUM
     Dosage: 150 MG AT 8:00 HOUR
  9. MAGNESIUM PIDOLATE [Concomitant]
     Active Substance: MAGNESIUM PIDOLATE
     Dosage: 1 SACHET AT 14:00 HOUR
  10. CALCIUM CARBONATE\CHOLECALCIFEROL [Concomitant]
     Active Substance: CALCIUM CARBONATE\CHOLECALCIFEROL
     Dosage: ONE TABLET AFTER LUNCH AND ONE AFTER DINNER
  11. LASIX [Concomitant]
     Active Substance: FUROSEMIDE
     Dosage: 25MG AT 8:00 HOUR AND AT 14:00 HOUR
  12. EDOXABAN [Concomitant]
     Active Substance: EDOXABAN
     Dosage: 60 MG/DAY
  13. MOMETASONE [Concomitant]
     Active Substance: MOMETASONE
     Dosage: 140D 2 PUFFS AT 8:00 HOUR AND AT 20:00 HOUR FOR ONE MONTH
  14. SINEMET [Concomitant]
     Active Substance: CARBIDOPA\LEVODOPA
     Dosage: 100 MG+25 MG AT 8:00 HOUR AND AT 14:00 HO
  15. LUVION [Concomitant]
     Dosage: 50 MG AT 14:00 HOUR
  16. BISOPROLOL [Concomitant]
     Active Substance: BISOPROLOL\BISOPROLOL FUMARATE
     Dosage: 2.5MG AT 8:00 HOUR
  17. PALEXIA [Concomitant]
     Active Substance: TAPENTADOL HYDROCHLORIDE
     Dosage: 100 MG AT 8:00 HOUR AND AT 20:00 HOUR
  18. LEVOTHYROXINE [Concomitant]
     Active Substance: LEVOTHYROXINE\LEVOTHYROXINE SODIUM
     Dosage: 100 MCG AT 8:00 HOUR FROM MONDAY TO FRIDAY

REACTIONS (5)
  - Tremor [Recovering/Resolving]
  - Pyrexia [Recovering/Resolving]
  - Dyspnoea [Recovering/Resolving]
  - International normalised ratio increased [Recovering/Resolving]
  - Urosepsis [Recovering/Resolving]

NARRATIVE: CASE EVENT DATE: 20240101
